FAERS Safety Report 8446012 (Version 9)
Quarter: 2015Q3

REPORT INFORMATION
  Report Type: Report from Study
  Country: BR (occurrence: BR)
  Receive Date: 20120307
  Receipt Date: 20150724
  Transmission Date: 20151125
  Serious: Yes (Hospitalization, Other)
  Sender: FDA-Public Use
  Company Number: BR-ROCHE-784923

PATIENT
  Age: 55 Year
  Sex: Female
  Weight: 53 kg

DRUGS (10)
  1. ACLASTA [Concomitant]
     Active Substance: ZOLEDRONIC ACID
     Route: 065
  2. SIMVASTATIN. [Concomitant]
     Active Substance: SIMVASTATIN
     Route: 065
  3. DIOVAN [Concomitant]
     Active Substance: VALSARTAN
     Route: 065
  4. CORTISONE [Concomitant]
     Active Substance: CORTISONE\HYDROCORTISONE
  5. RITUXIMAB [Suspect]
     Active Substance: RITUXIMAB
     Indication: RHEUMATOID ARTHRITIS
     Route: 042
     Dates: start: 20100801, end: 20120228
  6. METHOTREXATE [Concomitant]
     Active Substance: METHOTREXATE
     Route: 065
  7. DEPURAN [Concomitant]
  8. ACTEMRA [Suspect]
     Active Substance: TOCILIZUMAB
     Indication: RHEUMATOID ARTHRITIS
     Route: 042
     Dates: start: 20121101
  9. DEFLANIL [Concomitant]
     Route: 065
  10. KETOROLAC [Concomitant]
     Active Substance: KETOROLAC\KETOROLAC TROMETHAMINE

REACTIONS (24)
  - Infusion related reaction [Recovered/Resolved]
  - Hypersensitivity [Not Recovered/Not Resolved]
  - Lumbar vertebral fracture [Not Recovered/Not Resolved]
  - Hypertension [Unknown]
  - Pain [Not Recovered/Not Resolved]
  - Speech disorder [Recovering/Resolving]
  - Dyspnoea [Recovered/Resolved]
  - Excessive granulation tissue [Recovered/Resolved]
  - Liver function test abnormal [Not Recovered/Not Resolved]
  - Musculoskeletal stiffness [Not Recovered/Not Resolved]
  - Suffocation feeling [Recovered/Resolved]
  - Abdominal distension [Recovered/Resolved]
  - Foot deformity [Not Recovered/Not Resolved]
  - Ill-defined disorder [Not Recovered/Not Resolved]
  - Seizure [Recovering/Resolving]
  - Fall [Unknown]
  - Ill-defined disorder [Recovered/Resolved]
  - Hypersensitivity [Unknown]
  - Allergic respiratory symptom [Recovered/Resolved]
  - Contusion [Recovered/Resolved]
  - Inflammation [Unknown]
  - Throat tightness [Recovering/Resolving]
  - Sensory disturbance [Recovering/Resolving]
  - Cervical vertebral fracture [Not Recovered/Not Resolved]

NARRATIVE: CASE EVENT DATE: 201103
